FAERS Safety Report 25180756 (Version 1)
Quarter: 2025Q2

REPORT INFORMATION
  Report Type: Spontaneous
  Country: US (occurrence: US)
  Receive Date: 20250409
  Receipt Date: 20250409
  Transmission Date: 20250717
  Serious: No
  Sender: BAUSCH AND LOMB
  Company Number: US-BAUSCHBL-2024BNL027765

PATIENT
  Sex: Female

DRUGS (2)
  1. MIEBO [Suspect]
     Active Substance: PERFLUOROHEXYLOCTANE
     Indication: Product used for unknown indication
     Route: 065
  2. MIEBO [Suspect]
     Active Substance: PERFLUOROHEXYLOCTANE
     Route: 065

REACTIONS (10)
  - Superior limbic keratoconjunctivitis [Unknown]
  - Product use complaint [Unknown]
  - Exposure via skin contact [Unknown]
  - Accidental exposure to product [Unknown]
  - Product delivery mechanism issue [Unknown]
  - Product design issue [Unknown]
  - Product dose omission in error [Unknown]
  - Product container seal issue [Unknown]
  - Product knowledge deficit [Unknown]
  - Suspected product tampering [Unknown]
